FAERS Safety Report 8589868 (Version 2)
Quarter: 2012Q4

REPORT INFORMATION
  Report Type: 
  Country: NO (occurrence: NO)
  Receive Date: 20120601
  Receipt Date: 20121008
  Transmission Date: 20130627
  Serious: Yes (Other)
  Sender: FDA-Public Use
  Company Number: PHHY2012NO043914

PATIENT
  Sex: Male

DRUGS (6)
  1. RITALINA [Suspect]
     Dosage: 20 mg
  2. RITALINA [Suspect]
     Dosage: 30 mg
  3. RITALINA [Suspect]
     Dosage: 40 mg
  4. RITALINA [Suspect]
     Dosage: 20 mg
  5. RITALINA [Suspect]
     Dosage: 10 mg
  6. RITALINA [Suspect]
     Dosage: 20 mg

REACTIONS (5)
  - Pharyngeal oedema [Recovered/Resolved]
  - Hypersensitivity [Recovered/Resolved]
  - Irritability [Recovered/Resolved]
  - Mood altered [Recovered/Resolved]
  - Agitation [Recovered/Resolved]
